FAERS Safety Report 23421821 (Version 2)
Quarter: 2024Q1

REPORT INFORMATION
  Report Type: Spontaneous
  Country: US (occurrence: US)
  Receive Date: 20240119
  Receipt Date: 20240220
  Transmission Date: 20240410
  Serious: No
  Sender: FDA-Public Use
  Company Number: US-PFIZER INC-202400015359

PATIENT
  Age: 30 Year
  Sex: Female
  Weight: 52.154 kg

DRUGS (2)
  1. PAXLOVID [Suspect]
     Active Substance: NIRMATRELVIR\RITONAVIR
     Indication: COVID-19 treatment
     Dosage: UNK, 2X/DAY (AS PRESCRIBED)
     Dates: start: 20240104, end: 20240109
  2. MUCINEX SINUS [CHLORPHENAMINE MALEATE;PARACETAMOL;PHENYLEPHRINE HYDROC [Concomitant]
     Dosage: UNK
     Dates: start: 20240105, end: 20240109

REACTIONS (2)
  - COVID-19 [Recovered/Resolved]
  - Disease recurrence [Recovered/Resolved]

NARRATIVE: CASE EVENT DATE: 20240114
